FAERS Safety Report 5308124-1 (Version None)
Quarter: 2007Q2

REPORT INFORMATION
  Report Type: 
  Country: None (occurrence: None)
  Receive Date: 20070426
  Receipt Date: 20070416
  Transmission Date: 20071010
  Serious: Yes (Other)
  Sender: FDA-Public Use
  Company Number: PHEH2007US05628

PATIENT
  Age: 26 Year
  Sex: Female

DRUGS (2)
  1. ZADITOR [Suspect]
  2. HORMONAL CONTRACEPTIVES [Concomitant]

REACTIONS (1)
  - EOSINOPHIL COUNT DECREASED [None]
